FAERS Safety Report 4476397-3 (Version None)
Quarter: 2004Q4

REPORT INFORMATION
  Report Type: 
  Country: None (occurrence: None)
  Receive Date: 20041016
  Receipt Date: 20041007
  Transmission Date: 20050328
  Serious: Yes (Other)
  Sender: FDA-Public Use
  Company Number: US-MERCK-0410USA01212

PATIENT
  Age: 50 Year
  Sex: Female

DRUGS (3)
  1. COUGH, COLD, AND FLU THERAPIES (UNSPECIFIED) [Concomitant]
     Indication: HYPERSENSITIVITY
     Route: 065
  2. VIOXX [Suspect]
     Indication: PAIN
     Route: 048
     Dates: start: 20021004, end: 20040101
  3. VIOXX [Suspect]
     Route: 048
     Dates: end: 20040101

REACTIONS (1)
  - CHEST PAIN [None]
